FAERS Safety Report 24412108 (Version 2)
Quarter: 2024Q4

REPORT INFORMATION
  Report Type: Spontaneous
  Country: FR (occurrence: FR)
  Receive Date: 20241008
  Receipt Date: 20241121
  Transmission Date: 20250115
  Serious: Yes (Other)
  Sender: FRESENIUS KABI
  Company Number: None

PATIENT
  Age: 74 Year

DRUGS (2)
  1. LIDOCAINE HYDROCHLORIDE [Suspect]
     Active Substance: LIDOCAINE HYDROCHLORIDE
     Indication: Anaesthesia
     Dosage: THERAPY START TIME: 08:30?75 MG, 1 DOSAGE TOTAL
     Route: 051
     Dates: start: 20240917, end: 20240917
  2. ROPIVACAINE HYDROCHLORIDE [Suspect]
     Active Substance: ROPIVACAINE HYDROCHLORIDE
     Indication: Anaesthesia
     Dosage: THERAPY START TIME: 08:30?75 MILLIGRAM, 1 DOSAGE TOTAL?FORM OF ADMINISTRATION: SOLUTION FOR INJECTIO
     Route: 051
     Dates: start: 20240917, end: 20240917

REACTIONS (4)
  - Paraesthesia oral [Recovered/Resolved]
  - Clonus [Recovered/Resolved]
  - Dyspnoea [Recovered/Resolved]
  - Chest pain [Recovered/Resolved]

NARRATIVE: CASE EVENT DATE: 20240917
